FAERS Safety Report 7914026-4 (Version None)
Quarter: 2011Q4

REPORT INFORMATION
  Report Type: 
  Country: None (occurrence: None)
  Receive Date: 20111115
  Receipt Date: 20111102
  Transmission Date: 20120403
  Serious: Yes (Hospitalization, Other)
  Sender: FDA-Public Use
  Company Number: US-BAYER-2011-050022

PATIENT
  Age: 19 Year
  Sex: Female
  Weight: 122.45 kg

DRUGS (3)
  1. ALLEGRA [Concomitant]
     Route: 048
  2. DROSPIRENONE AND ETHINYL ESTRADIOL [Suspect]
     Indication: CONTRACEPTION
     Dosage: UNK
     Dates: start: 20080101, end: 20090101
  3. YASMIN [Suspect]
     Indication: CONTRACEPTION
     Dosage: UNK
     Dates: start: 20050101, end: 20070101

REACTIONS (11)
  - DIARRHOEA [None]
  - ALOPECIA [None]
  - HYPERTRICHOSIS [None]
  - DEFORMITY [None]
  - ANHEDONIA [None]
  - CHOLECYSTITIS CHRONIC [None]
  - PAIN [None]
  - VOMITING [None]
  - GALLBLADDER DISORDER [None]
  - ANXIETY [None]
  - ABDOMINAL PAIN UPPER [None]
